FAERS Safety Report 12474313 (Version 1)
Quarter: 2016Q2

REPORT INFORMATION
  Report Type: Spontaneous
  Country: US (occurrence: None)
  Receive Date: 20160616
  Receipt Date: 20160616
  Transmission Date: 20160815
  Serious: Yes (Death)
  Sender: FDA-Public Use
  Company Number: None

PATIENT
  Age: 84 Year
  Sex: Male
  Weight: 95.26 kg

DRUGS (1)
  1. PACERONE [Suspect]
     Active Substance: AMIODARONE HYDROCHLORIDE
     Indication: ATRIAL FIBRILLATION
     Route: 048

REACTIONS (4)
  - Respiratory failure [None]
  - Interstitial lung disease [None]
  - Toxicity to various agents [None]
  - Acute respiratory distress syndrome [None]

NARRATIVE: CASE EVENT DATE: 20140110
